FAERS Safety Report 15449139 (Version 4)
Quarter: 2019Q2

REPORT INFORMATION
  Report Type: Report from Study
  Country: None (occurrence: BR)
  Receive Date: 20180930
  Receipt Date: 20190503
  Transmission Date: 20190711
  Serious: Yes (Other)
  Sender: FDA-Public Use
  Company Number: BR-ABBVIE-18K-020-2487590-00

PATIENT
  Age: 71 Year
  Sex: Female

DRUGS (2)
  1. HUMIRA [Suspect]
     Active Substance: ADALIMUMAB
     Route: 058
  2. HUMIRA [Suspect]
     Active Substance: ADALIMUMAB
     Indication: PSORIATIC ARTHROPATHY
     Route: 058
     Dates: start: 20180626, end: 201811

REACTIONS (16)
  - Gastric ulcer [Unknown]
  - Epistaxis [Unknown]
  - Breast mass [Recovering/Resolving]
  - Vein discolouration [Not Recovered/Not Resolved]
  - Immunodeficiency [Unknown]
  - Cholelithiasis [Unknown]
  - Gastric haemorrhage [Unknown]
  - Visual impairment [Unknown]
  - Influenza [Unknown]
  - Capillary fragility [Not Recovered/Not Resolved]
  - Skin discolouration [Not Recovered/Not Resolved]
  - Psoriatic arthropathy [Unknown]
  - Injection site pain [Not Recovered/Not Resolved]
  - Peripheral swelling [Not Recovered/Not Resolved]
  - Peripheral venous disease [Not Recovered/Not Resolved]
  - Nephrolithiasis [Unknown]

NARRATIVE: CASE EVENT DATE: 2018
